FAERS Safety Report 10103569 (Version 1)
Quarter: 2014Q2

REPORT INFORMATION
  Report Type: Spontaneous
  Country: GB (occurrence: GB)
  Receive Date: 20140424
  Receipt Date: 20140424
  Transmission Date: 20141212
  Serious: Yes (Other)
  Sender: FDA-Public Use
  Company Number: GB-WATSON-2014-08056

PATIENT
  Age: 44 Year
  Sex: Male
  Weight: 95 kg

DRUGS (2)
  1. METRONIDAZOLE (UNKNOWN) [Suspect]
     Indication: TOOTH ABSCESS
     Dosage: 400 MG, TID
     Route: 048
     Dates: start: 20140327, end: 20140330
  2. AMOXICILLIN [Concomitant]
     Indication: TOOTH ABSCESS
     Dosage: UNK
     Route: 065

REACTIONS (6)
  - Depression [Not Recovered/Not Resolved]
  - Tearfulness [Not Recovered/Not Resolved]
  - Fatigue [Unknown]
  - Thinking abnormal [Unknown]
  - Emotional disorder [Unknown]
  - Dissociation [Unknown]
